FAERS Safety Report 4790988-1 (Version None)
Quarter: 2005Q4

REPORT INFORMATION
  Report Type: 
  Country: None (occurrence: None)
  Receive Date: 20051005
  Receipt Date: 20050915
  Transmission Date: 20060501
  Serious: Yes (Death)
  Sender: FDA-Public Use
  Company Number: US_0509122112

PATIENT

DRUGS (1)
  1. ZYPREXA [Suspect]

REACTIONS (1)
  - DIABETES MELLITUS [None]
